FAERS Safety Report 7298937-1 (Version None)
Quarter: 2011Q1

REPORT INFORMATION
  Report Type: 
  Country: None (occurrence: None)
  Receive Date: 20110217
  Receipt Date: 20110216
  Transmission Date: 20110831
  Serious: Yes (Life-Threatening, Hospitalization)
  Sender: FDA-Public Use
  Company Number: PHHO2010GB18597

PATIENT
  Sex: Female

DRUGS (2)
  1. LETROZOLE [Suspect]
     Indication: BREAST CANCER
     Dosage: 2.5 MG,
     Route: 048
     Dates: start: 20071205
  2. ASPIRIN [Suspect]
     Dosage: 75 MG, UNK
     Route: 048
     Dates: start: 19970101, end: 20101205

REACTIONS (6)
  - ABDOMINAL CAVITY DRAINAGE [None]
  - GASTRIC ULCER PERFORATION [None]
  - GASTROINTESTINAL TUBE INSERTION [None]
  - ABDOMINAL PAIN [None]
  - ATRIAL FIBRILLATION [None]
  - PLEURAL EFFUSION [None]
